FAERS Safety Report 14843463 (Version 1)
Quarter: 2018Q2

REPORT INFORMATION
  Report Type: Spontaneous
  Country: ES (occurrence: ES)
  Receive Date: 20180503
  Receipt Date: 20180503
  Transmission Date: 20180711
  Serious: Yes (Death, Hospitalization, Other)
  Sender: FDA-Public Use
  Company Number: ES-MYLANLABS-2018M1027841

PATIENT
  Age: 79 Year
  Sex: Male

DRUGS (7)
  1. PREDNISONE. [Suspect]
     Active Substance: PREDNISONE
     Indication: GLOMERULONEPHRITIS PROLIFERATIVE
     Dosage: 60 MG/DAY
     Route: 048
  2. METHYLPREDNISOLONE. [Suspect]
     Active Substance: METHYLPREDNISOLONE
     Indication: GLOMERULONEPHRITIS PROLIFERATIVE
     Dosage: 3 BOLUSES
     Route: 050
  3. CYCLOPHOSPHAMIDE. [Suspect]
     Active Substance: CYCLOPHOSPHAMIDE
     Indication: GLOMERULONEPHRITIS PROLIFERATIVE
     Dosage: 100 MG/DAY
  4. CLOFAZIMINE [Concomitant]
     Active Substance: CLOFAZIMINE
     Indication: TYPE 2 LEPRA REACTION
     Dosage: 50 MG/DAY
     Route: 065
  5. MYCOPHENOLATE SODIUM [Suspect]
     Active Substance: MYCOPHENOLATE SODIUM
     Indication: GLOMERULONEPHRITIS PROLIFERATIVE
     Dosage: 360 MG, BID
     Route: 065
     Dates: start: 201105, end: 201106
  6. DAPSONE. [Concomitant]
     Active Substance: DAPSONE
     Indication: TYPE 2 LEPRA REACTION
     Dosage: 100 MG/DAY
     Route: 065
  7. RIFAMPICIN [Concomitant]
     Active Substance: RIFAMPIN
     Indication: TYPE 2 LEPRA REACTION
     Dosage: 300 MG/MONTH
     Route: 065

REACTIONS (1)
  - Type 2 lepra reaction [Unknown]

NARRATIVE: CASE EVENT DATE: 201108
